FAERS Safety Report 23118662 (Version 4)
Quarter: 2023Q4

REPORT INFORMATION
  Report Type: Report from Study
  Country: AR (occurrence: AR)
  Receive Date: 20231028
  Receipt Date: 20231130
  Transmission Date: 20240109
  Serious: Yes (Other)
  Sender: FDA-Public Use
  Company Number: AR-JNJFOC-20231045056

PATIENT
  Age: 69 Year
  Sex: Female
  Weight: 74 kg

DRUGS (1)
  1. SIMPONI [Suspect]
     Active Substance: GOLIMUMAB
     Indication: Rheumatoid arthritis
     Dosage: 50.00 MG / 0.50 ML
     Route: 058
     Dates: start: 20210111

REACTIONS (5)
  - Cataract [Unknown]
  - Device failure [Unknown]
  - Product dose omission issue [Unknown]
  - Injection site pain [Recovering/Resolving]
  - Product colour issue [Recovering/Resolving]

NARRATIVE: CASE EVENT DATE: 20231013
